FAERS Safety Report 9138495 (Version 3)
Quarter: 2013Q1

REPORT INFORMATION
  Report Type: Spontaneous
  Country: US (occurrence: US)
  Receive Date: 20130305
  Receipt Date: 20130320
  Transmission Date: 20140127
  Serious: No
  Sender: FDA-Public Use
  Company Number: US-BIOGENIDEC-2013BI019021

PATIENT
  Sex: Female

DRUGS (2)
  1. TYSABRI [Suspect]
     Indication: MULTIPLE SCLEROSIS
     Route: 042
     Dates: start: 20110518, end: 20121212
  2. REBIF [Concomitant]
     Indication: MULTIPLE SCLEROSIS

REACTIONS (2)
  - Fatigue [Recovered/Resolved]
  - Pain in extremity [Recovered/Resolved]
